FAERS Safety Report 17001434 (Version 2)
Quarter: 2020Q1

REPORT INFORMATION
  Report Type: Spontaneous
  Country: AT (occurrence: AT)
  Receive Date: 20191106
  Receipt Date: 20200220
  Transmission Date: 20200409
  Serious: Yes (Other)
  Sender: FDA-Public Use
  Company Number: AT-PURDUE PHARMA-GBR-2019-0072259

PATIENT
  Age: 22 Year
  Sex: Male

DRUGS (1)
  1. SUBSTITOL [Suspect]
     Active Substance: MORPHINE SULFATE
     Indication: PRODUCT SUBSTITUTION
     Dosage: 720 MG, DAILY
     Route: 065

REACTIONS (3)
  - Overdose [Unknown]
  - Road traffic accident [Unknown]
  - Potentiating drug interaction [Unknown]

NARRATIVE: CASE EVENT DATE: 20190616
